FAERS Safety Report 5423473-4 (Version None)
Quarter: 2007Q3

REPORT INFORMATION
  Report Type: 
  Country: None (occurrence: None)
  Receive Date: 20070823
  Receipt Date: 20070822
  Transmission Date: 20080115
  Serious: Yes (Hospitalization)
  Sender: FDA-Public Use
  Company Number: FR-SP-2005-02404

PATIENT
  Age: 72 Year
  Sex: Male

DRUGS (2)
  1. IMMUCYST [Suspect]
     Indication: BLADDER CANCER
     Route: 043
     Dates: start: 20050429, end: 20050617
  2. IMMUCYST [Suspect]
     Route: 043
     Dates: start: 20050429, end: 20050617

REACTIONS (4)
  - CYSTITIS [None]
  - EPIDIDYMITIS [None]
  - SCROTAL ABSCESS [None]
  - TUBERCULOSIS [None]
